FAERS Safety Report 7957946-7 (Version None)
Quarter: 2011Q4

REPORT INFORMATION
  Report Type: 
  Country: None (occurrence: None)
  Receive Date: 20111205
  Receipt Date: 20111122
  Transmission Date: 20120403
  Serious: Yes (Hospitalization)
  Sender: FDA-Public Use
  Company Number: GXBR2011US005053

PATIENT
  Sex: Male
  Weight: 108 kg

DRUGS (8)
  1. PREDNISONE TAB [Concomitant]
     Dosage: UNK MG, UNK
  2. MYCOPHENOLATE MOFETIL [Concomitant]
     Dosage: UNK MG, UNK
  3. CARDURA                                 /JOR/ [Concomitant]
     Dosage: UNK MG, UNK
  4. TACROLIMUS [Suspect]
     Indication: RENAL AND PANCREAS TRANSPLANT
     Dosage: 3 MG, BID
     Dates: start: 20100120
  5. LOPRESSOR [Concomitant]
     Dosage: UNK MG, UNK
  6. OXYCODONE HCL [Concomitant]
     Dosage: UNK MG, UNK
  7. TRAZODONE HCL [Concomitant]
     Dosage: UNK MG, UNK
  8. LOTENSIN [Suspect]
     Dosage: 40 MG, UNK

REACTIONS (6)
  - RIB FRACTURE [None]
  - PANCREATIC CYST [None]
  - PANCREATITIS [None]
  - HYPOVOLAEMIA [None]
  - PLEURAL EFFUSION [None]
  - FALL [None]
